FAERS Safety Report 7934716-7 (Version None)
Quarter: 2011Q4

REPORT INFORMATION
  Report Type: 
  Country: None (occurrence: None)
  Receive Date: 20111122
  Receipt Date: 20111115
  Transmission Date: 20120403
  Serious: Yes (Other)
  Sender: FDA-Public Use
  Company Number: US-ABBOTT-11P-163-0874554-00

PATIENT
  Sex: Male
  Weight: 127.12 kg

DRUGS (17)
  1. SIMPONI [Suspect]
     Indication: PRODUCT USED FOR UNKNOWN INDICATION
     Dates: start: 20110301, end: 20111001
  2. ACETAMINOPHEN [Concomitant]
     Indication: PAIN
  3. PRAVASTATIN [Concomitant]
     Indication: HYPERLIPIDAEMIA
  4. FOLIC ACID [Concomitant]
     Indication: VITAMIN SUPPLEMENTATION
  5. VITAMIN D [Concomitant]
     Indication: HYPOVITAMINOSIS
  6. HUMIRA [Suspect]
     Indication: PSORIASIS
     Dates: start: 20111001
  7. CO Q10 [Concomitant]
     Indication: SUPPLEMENTATION THERAPY
  8. OMEPRAZOLE [Concomitant]
     Indication: GASTROOESOPHAGEAL REFLUX DISEASE
  9. ASPIRIN [Concomitant]
     Indication: PRODUCT USED FOR UNKNOWN INDICATION
  10. DOSANIDE [Concomitant]
     Indication: PSORIASIS
  11. LISINOPRIL [Concomitant]
     Indication: HYPERTENSION
  12. FLOSANIDE [Concomitant]
     Indication: PSORIASIS
  13. GLUCOSAMINE CHONDROITIN [Concomitant]
     Indication: PRODUCT USED FOR UNKNOWN INDICATION
  14. HUMIRA [Suspect]
     Indication: PSORIATIC ARTHROPATHY
     Dates: start: 20080101, end: 20110301
  15. METHOTREXATE [Concomitant]
     Indication: PSORIATIC ARTHROPATHY
  16. LOVAZA [Concomitant]
     Indication: SUPPLEMENTATION THERAPY
  17. TRAMADOL HCL [Concomitant]
     Indication: PAIN

REACTIONS (10)
  - DRUG INEFFECTIVE [None]
  - FALL [None]
  - BACK DISORDER [None]
  - BACK PAIN [None]
  - NECK PAIN [None]
  - THERAPEUTIC RESPONSE UNEXPECTED [None]
  - HIDRADENITIS [None]
  - SLEEP APNOEA SYNDROME [None]
  - PSORIASIS [None]
  - FATIGUE [None]
